FAERS Safety Report 4380746-4 (Version None)
Quarter: 2004Q2

REPORT INFORMATION
  Report Type: 
  Country: None (occurrence: None)
  Receive Date: 20040614
  Receipt Date: 20040602
  Transmission Date: 20050107
  Serious: Yes (Hospitalization, Other)
  Sender: FDA-Public Use
  Company Number: HQWYE191303JUN04

PATIENT
  Age: 27 Year
  Sex: Male
  Weight: 97.61 kg

DRUGS (2)
  1. MYLOTARG [Suspect]
     Indication: ACUTE MYELOID LEUKAEMIA
     Dosage: 20 MG 1X PER 1 DAY, INTRAVENOUS
     Route: 042
     Dates: start: 20040504, end: 20040504
  2. POTASSIUM CHLORIDE [Concomitant]

REACTIONS (1)
  - FEBRILE NEUTROPENIA [None]
